FAERS Safety Report 21849683 (Version 1)
Quarter: 2023Q1

REPORT INFORMATION
  Report Type: Spontaneous
  Country: FR (occurrence: FR)
  Receive Date: 20230111
  Receipt Date: 20230111
  Transmission Date: 20230417
  Serious: Yes (Other)
  Sender: FDA-Public Use
  Company Number: FR-AMGEN-FRASP2023002818

PATIENT
  Age: 75 Year
  Sex: Male

DRUGS (2)
  1. ARANESP [Suspect]
     Active Substance: DARBEPOETIN ALFA
     Indication: Product used for unknown indication
     Dosage: 50 MICROGRAM, QWK
     Route: 065
     Dates: start: 2022
  2. ARANESP [Suspect]
     Active Substance: DARBEPOETIN ALFA
     Dosage: 80 MICROGRAM
     Route: 065
     Dates: start: 20230102

REACTIONS (5)
  - Cardiac failure [Unknown]
  - Cold type haemolytic anaemia [Unknown]
  - Non-alcoholic steatohepatitis [Unknown]
  - Familial mediterranean fever [Unknown]
  - Ammonia increased [Unknown]

NARRATIVE: CASE EVENT DATE: 20230101
